FAERS Safety Report 7439940-8 (Version None)
Quarter: 2011Q2

REPORT INFORMATION
  Report Type: 
  Country: None (occurrence: None)
  Receive Date: 20110427
  Receipt Date: 20090416
  Transmission Date: 20111010
  Serious: Yes (Death, Other)
  Sender: FDA-Public Use
  Company Number: US-BAYER-200918366NA

PATIENT
  Age: 58 Year
  Sex: Female
  Weight: 54.422 kg

DRUGS (41)
  1. HALCION [Concomitant]
     Dosage: .25MG
     Route: 048
     Dates: start: 20040310
  2. METOCLOPRAMIDE [Concomitant]
     Dosage: 10 MG
     Route: 042
     Dates: start: 20040310
  3. HEPARIN [Concomitant]
     Dosage: UNK
     Route: 042
     Dates: start: 20040311
  4. PRIMACOR [Concomitant]
     Dosage: 0.5 - 2.5 MG
     Route: 042
     Dates: start: 20040311, end: 20040311
  5. LEVOPHED [Concomitant]
     Dosage: UNK
     Route: 042
     Dates: start: 20040311, end: 20040311
  6. ESMOLOL [Concomitant]
     Dosage: UNK
     Route: 042
     Dates: start: 20040311, end: 20040311
  7. NEO-SYNEPHRINOL [Concomitant]
     Dosage: UNK
     Route: 042
     Dates: start: 20040311, end: 20040311
  8. AZITHROMYCIN [Concomitant]
     Dosage: 250 MG, UNK X TWO COURSES
     Route: 048
  9. AZITHROMYCIN [Concomitant]
  10. BELLAMINE [Concomitant]
     Dosage: UNK
  11. PEPCID [Concomitant]
     Dosage: 10 MG, QD
     Route: 048
     Dates: start: 20040310
  12. PROTAMINE SULFATE [Concomitant]
     Dosage: UNK
     Route: 042
     Dates: start: 20040311, end: 20040311
  13. VASOPRESSIN [Concomitant]
     Dosage: UNK
     Route: 042
     Dates: start: 20040311
  14. VASOPRESSIN [Concomitant]
     Dosage: UNK
     Route: 042
     Dates: start: 20040311, end: 20040311
  15. EPINEPHRINE [Concomitant]
     Dosage: UNK
     Route: 042
     Dates: start: 20040311, end: 20040311
  16. TRASYLOL [Suspect]
     Dosage: 200 ML
     Route: 042
     Dates: start: 20040311, end: 20040311
  17. CELEBREX [Concomitant]
     Dosage: 20 MG
     Route: 048
     Dates: start: 20000101, end: 20030101
  18. NITROGLYCERIN [Concomitant]
     Dosage: UNK
     Route: 042
     Dates: start: 20040311
  19. INSULIN [Concomitant]
     Dosage: UNK
     Route: 042
     Dates: start: 20040311
  20. RED BLOOD CELLS [Concomitant]
     Dosage: 385
     Route: 042
     Dates: start: 20040311, end: 20040311
  21. TRASYLOL [Suspect]
     Dosage: 50 ML/HOUR X 10 DOSES
     Dates: start: 20040311, end: 20040311
  22. INTEGRILIN [Concomitant]
     Dosage: UNK
     Dates: start: 20040310
  23. ESMOLOL [Concomitant]
  24. LASIX [Concomitant]
     Dosage: UNK
     Dates: start: 20040311
  25. LIDOCAINE [Concomitant]
     Dosage: UNK
     Route: 042
     Dates: start: 20040311, end: 20040311
  26. NITROGLYCERIN [Concomitant]
     Dosage: UNK
     Route: 042
     Dates: start: 20040311, end: 20040311
  27. HEPARIN [Concomitant]
     Dosage: 27,000 U
     Route: 042
     Dates: start: 20040311, end: 20040311
  28. ESMOLOL [Concomitant]
     Dosage: UNK
     Route: 042
     Dates: start: 20040311, end: 20040311
  29. CARDIZEM [Concomitant]
     Dosage: UNK
     Route: 042
     Dates: start: 20040311, end: 20040311
  30. TRASYLOL [Suspect]
     Indication: CORONARY ARTERY BYPASS
     Dosage: 1 ML, UNK
     Route: 042
     Dates: start: 20040311, end: 20040311
  31. BENZONATATE [Concomitant]
     Dosage: 100MG
     Dates: start: 20030824
  32. CRESTOR [Concomitant]
     Dosage: UNK
     Route: 048
     Dates: start: 19930101, end: 20030301
  33. LOPRESSOR [Concomitant]
     Dosage: 25 MG
     Route: 048
     Dates: start: 20040310
  34. PRIMACOR [Concomitant]
     Dosage: UNK
     Route: 042
     Dates: start: 20040311, end: 20040311
  35. ZINACEF [Concomitant]
     Dosage: UNK
     Route: 042
     Dates: start: 20040311
  36. PROTAMINE SULFATE [Concomitant]
     Dosage: 320MG/50 ML D5W
     Route: 042
     Dates: start: 20040311, end: 20040311
  37. TRASYLOL [Suspect]
     Dosage: 50 ML FOR 11 DOSES
     Dates: start: 20040311, end: 20040311
  38. ATIVAN [Concomitant]
     Dosage: UNK
     Route: 048
     Dates: start: 19900101, end: 20030301
  39. LEVOPHED [Concomitant]
     Dosage: UNK
     Route: 042
     Dates: start: 20040311, end: 20040311
  40. DECADRON [Concomitant]
     Dosage: UNK
     Route: 042
     Dates: start: 20040311, end: 20040311
  41. RED BLOOD CELLS [Concomitant]
     Dosage: 2 UNITS PRBC
     Route: 042
     Dates: start: 20040311, end: 20040311

REACTIONS (12)
  - HEPARIN-INDUCED THROMBOCYTOPENIA [None]
  - CARDIOGENIC SHOCK [None]
  - RENAL FAILURE [None]
  - DEATH [None]
  - ANXIETY [None]
  - INJURY [None]
  - ANHEDONIA [None]
  - UNEVALUABLE EVENT [None]
  - FEAR [None]
  - PAIN [None]
  - DEPRESSION [None]
  - MYOCARDIAL INFARCTION [None]
